FAERS Safety Report 4720290-5 (Version None)
Quarter: 2005Q3

REPORT INFORMATION
  Report Type: 
  Country: None (occurrence: None)
  Receive Date: 20050719
  Receipt Date: 20050706
  Transmission Date: 20060218
  Serious: Yes (Death)
  Sender: FDA-Public Use
  Company Number: HQWYE046408JUL05

PATIENT
  Age: 65 Year
  Sex: Female

DRUGS (1)
  1. ADVIL [Suspect]

REACTIONS (1)
  - DRUG INTOLERANCE [None]
